FAERS Safety Report 23095603 (Version 1)
Quarter: 2023Q4

REPORT INFORMATION
  Report Type: Spontaneous
  Country: US (occurrence: None)
  Receive Date: 20231019
  Receipt Date: 20231019
  Transmission Date: 20240109
  Serious: Yes (Hospitalization)
  Sender: FDA-Public Use
  Company Number: None

PATIENT
  Age: 78 Year
  Sex: Male
  Weight: 112 kg

DRUGS (1)
  1. DAPTOMYCIN [Suspect]
     Active Substance: DAPTOMYCIN
     Dosage: FREQUENCY : DAILY;?
     Route: 042
     Dates: start: 20220627, end: 20220804

REACTIONS (3)
  - Eosinophilic pneumonia [None]
  - Pneumonia bacterial [None]
  - Pneumonia viral [None]

NARRATIVE: CASE EVENT DATE: 20220804
